FAERS Safety Report 8061140-1 (Version None)
Quarter: 2012Q1

REPORT INFORMATION
  Report Type: 
  Country: None (occurrence: None)
  Receive Date: 20120120
  Receipt Date: 20110603
  Transmission Date: 20120608
  Serious: No
  Sender: FDA-Public Use
  Company Number: US-ALLERGAN-1107654US

PATIENT
  Age: 49 Year
  Sex: Female

DRUGS (2)
  1. ARTIFICIAL TEARS                   /00445101/ [Concomitant]
     Dosage: UNK
  2. RESTASIS [Suspect]
     Indication: LACRIMAL DISORDER
     Dosage: 1 GTT, BID
     Route: 047
     Dates: start: 20101201

REACTIONS (4)
  - ASTHENOPIA [None]
  - VISION BLURRED [None]
  - EYE IRRITATION [None]
  - EYE PAIN [None]
